FAERS Safety Report 22353436 (Version 1)
Quarter: 2023Q2

REPORT INFORMATION
  Report Type: Other
  Country: None (occurrence: CN)
  Receive Date: 20230523
  Receipt Date: 20230523
  Transmission Date: 20230722
  Serious: Yes (Other)
  Sender: FDA-Public Use
  Company Number: CN-Jiangsu Hengrui Medicine Co., Ltd.-2141868

PATIENT
  Age: 56 Year
  Sex: Male
  Weight: 53 kg

DRUGS (1)
  1. OXALIPLATIN [Suspect]
     Active Substance: OXALIPLATIN
     Indication: Hepatic cancer
     Route: 013
     Dates: start: 20230508, end: 20230508

REACTIONS (4)
  - Muscle twitching [Recovered/Resolved]
  - Dizziness [Recovered/Resolved]
  - Delirium [Recovered/Resolved]
  - Disorganised speech [Recovered/Resolved]

NARRATIVE: CASE EVENT DATE: 20230508
